FAERS Safety Report 18221216 (Version 1)
Quarter: 2020Q3

REPORT INFORMATION
  Report Type: Spontaneous
  Country: US (occurrence: US)
  Receive Date: 20200831
  Receipt Date: 20200831
  Transmission Date: 20201103
  Serious: Yes (Life-Threatening, Hospitalization)
  Sender: FDA-Public Use
  Company Number: None

PATIENT
  Age: 37 Year
  Sex: Female
  Weight: 58.5 kg

DRUGS (4)
  1. ACEBUTOLOL [Concomitant]
     Active Substance: ACEBUTOLOL
  2. BENADRYL ALLERGY LIQUI?GELS [Suspect]
     Active Substance: DIPHENHYDRAMINE HYDROCHLORIDE
     Indication: ALLERGY PROPHYLAXIS
     Dosage: ?          QUANTITY:1 DF DOSAGE FORM;?
     Route: 048
  3. VENTOLIN [Concomitant]
     Active Substance: ALBUTEROL SULFATE
  4. EPINEPHRINE AUTO INJECTOR [Concomitant]
     Active Substance: EPINEPHRINE

REACTIONS (6)
  - Feeling abnormal [None]
  - Product quality issue [None]
  - Malaise [None]
  - Sedation [None]
  - Fatigue [None]
  - Loss of consciousness [None]

NARRATIVE: CASE EVENT DATE: 20200829
